FAERS Safety Report 16550700 (Version 1)
Quarter: 2019Q3

REPORT INFORMATION
  Report Type: Spontaneous
  Country: US (occurrence: US)
  Receive Date: 20190709
  Receipt Date: 20190709
  Transmission Date: 20191004
  Serious: Yes (Hospitalization)
  Sender: FDA-Public Use
  Company Number: None

PATIENT
  Age: 30 Year
  Sex: Female
  Weight: 69.3 kg

DRUGS (2)
  1. CEFEPIME [Suspect]
     Active Substance: CEFEPIME HYDROCHLORIDE
     Indication: DEVICE RELATED INFECTION
     Route: 042
     Dates: start: 20190611, end: 20190705
  2. CEFEPIME [Suspect]
     Active Substance: CEFEPIME HYDROCHLORIDE
     Indication: STAPHYLOCOCCAL INFECTION
     Route: 042
     Dates: start: 20190611, end: 20190705

REACTIONS (8)
  - Burning sensation [None]
  - Vomiting [None]
  - Pyrexia [None]
  - Nausea [None]
  - Fatigue [None]
  - Chest pain [None]
  - Back pain [None]
  - Headache [None]

NARRATIVE: CASE EVENT DATE: 20190705
